FAERS Safety Report 24657069 (Version 1)
Quarter: 2024Q4

REPORT INFORMATION
  Report Type: Spontaneous
  Country: US (occurrence: US)
  Receive Date: 20241125
  Receipt Date: 20241125
  Transmission Date: 20250115
  Serious: No
  Sender: CHIESI
  Company Number: US-CHIESI-2024CHF04004

PATIENT
  Age: 9 Year
  Sex: Female

DRUGS (2)
  1. BETHKIS [Suspect]
     Active Substance: TOBRAMYCIN
     Indication: Pseudomonas infection
     Dosage: 300 MILLIGRAM, BID
  2. BETHKIS [Suspect]
     Active Substance: TOBRAMYCIN
     Indication: Off label use

REACTIONS (6)
  - Poor quality product administered [Unknown]
  - Off label use [Unknown]
  - Liquid product physical issue [Unknown]
  - Off label use [Unknown]
  - Product complaint [Not Recovered/Not Resolved]
  - No adverse event [Recovered/Resolved]
